FAERS Safety Report 14017135 (Version 5)
Quarter: 2018Q2

REPORT INFORMATION
  Report Type: Spontaneous
  Country: IT (occurrence: IT)
  Receive Date: 20170927
  Receipt Date: 20180403
  Transmission Date: 20180711
  Serious: Yes (Hospitalization, Other)
  Sender: FDA-Public Use
  Company Number: IT-MYLANLABS-2017M1058726

PATIENT
  Age: 80 Year
  Sex: Female

DRUGS (4)
  1. ORAMORPH [Suspect]
     Active Substance: MORPHINE SULFATE
     Indication: ARTHRALGIA
     Dosage: UNK UNK, PRN, 1 20 MG/ML AS NEEDED (PRN)
     Route: 048
     Dates: start: 20170812, end: 20170825
  2. ESOPRAL [Concomitant]
     Active Substance: ESOMEPRAZOLE MAGNESIUM
     Indication: PRODUCT USED FOR UNKNOWN INDICATION
     Dosage: 40 MG, UNK
     Route: 048
  3. LORAZEPAM. [Suspect]
     Active Substance: LORAZEPAM
     Indication: INSOMNIA
     Dosage: 1 MG DAILY
     Route: 048
     Dates: end: 20170825
  4. PRAZENE [Suspect]
     Active Substance: PRAZEPAM
     Indication: ANXIETY
     Dosage: 20 MG DAILY
     Route: 048
     Dates: end: 20170825

REACTIONS (6)
  - Bradypnoea [Recovering/Resolving]
  - Respiratory failure [Recovering/Resolving]
  - Hyperhidrosis [Recovering/Resolving]
  - Toxicity to various agents [Recovering/Resolving]
  - Hypercapnia [Recovering/Resolving]
  - Miosis [Recovering/Resolving]

NARRATIVE: CASE EVENT DATE: 20170825
